FAERS Safety Report 17307412 (Version 1)
Quarter: 2020Q1

REPORT INFORMATION
  Report Type: Spontaneous
  Country: HR (occurrence: HR)
  Receive Date: 20200123
  Receipt Date: 20200123
  Transmission Date: 20200409
  Serious: Yes (Other)
  Sender: FDA-Public Use
  Company Number: HR-US-PROVELL PHARMACEUTICALS LLC-9140580

PATIENT
  Age: 65 Year
  Sex: Female

DRUGS (6)
  1. RIVOTRIL [Concomitant]
     Active Substance: CLONAZEPAM
     Indication: MENTAL DISORDER
  2. CONTROLOC [Concomitant]
     Active Substance: PANTOPRAZOLE SODIUM
     Indication: GASTRIC PH DECREASED
  3. PRAZINE (PROMAZINE HYDROCHLORIDE) [Concomitant]
     Active Substance: PROMAZINE HYDROCHLORIDE
     Indication: MENTAL DISORDER
  4. EUTHYROX NF [Suspect]
     Active Substance: LEVOTHYROXINE SODIUM
     Indication: AUTOIMMUNE THYROIDITIS
     Route: 048
     Dates: start: 20191206, end: 20200108
  5. VITAMIN D3 [Concomitant]
     Active Substance: CHOLECALCIFEROL
     Indication: PRODUCT USED FOR UNKNOWN INDICATION
     Dosage: D3 DROPS
  6. IRUMED [Concomitant]
     Indication: CARDIAC DISORDER

REACTIONS (5)
  - Nervousness [Unknown]
  - Anxiety [Recovered/Resolved]
  - Abdominal pain upper [Unknown]
  - Blood pressure increased [Unknown]
  - Gastritis [Unknown]

NARRATIVE: CASE EVENT DATE: 20200106
